FAERS Safety Report 24767535 (Version 2)
Quarter: 2025Q1

REPORT INFORMATION
  Report Type: Report from Study
  Country: US (occurrence: US)
  Receive Date: 20241223
  Receipt Date: 20250207
  Transmission Date: 20250408
  Serious: Yes (Hospitalization, Other)
  Sender: ABBVIE
  Company Number: US-ABBVIE-5989578

PATIENT
  Sex: Male

DRUGS (2)
  1. IMBRUVICA [Suspect]
     Active Substance: IBRUTINIB
     Indication: Chronic lymphocytic leukaemia
     Route: 048
     Dates: start: 202209
  2. IMBRUVICA [Suspect]
     Active Substance: IBRUTINIB
     Indication: Chronic lymphocytic leukaemia
     Route: 048
     Dates: start: 20181228

REACTIONS (6)
  - Neck mass [Unknown]
  - Neck pain [Unknown]
  - Gait disturbance [Unknown]
  - Electric shock sensation [Unknown]
  - Depressed mood [Unknown]
  - Mass [Unknown]
